FAERS Safety Report 7509307-2 (Version None)
Quarter: 2011Q2

REPORT INFORMATION
  Report Type: 
  Country: None (occurrence: None)
  Receive Date: 20110527
  Receipt Date: 20110303
  Transmission Date: 20111010
  Serious: No
  Sender: FDA-Public Use
  Company Number: JP-ROCHE-767158

PATIENT
  Age: 5 Year
  Sex: Male
  Weight: 19 kg

DRUGS (2)
  1. CEFDITOREN PIVOXIL [Concomitant]
     Dosage: FORM: PERORAL AGENT.PATIENT RECEIVED PROBABLY CEFDITOREN PIVOXIL (MEIACT)-ANTIBIOTIC ON GRAM POSITIV
     Route: 048
     Dates: start: 20110302
  2. TAMIFLU [Suspect]
     Route: 048
     Dates: start: 20110302, end: 20110303

REACTIONS (2)
  - OVERDOSE [None]
  - NO ADVERSE EVENT [None]
